FAERS Safety Report 11214574 (Version 2)
Quarter: 2015Q3

REPORT INFORMATION
  Report Type: Report from Study
  Country: AR (occurrence: AR)
  Receive Date: 20150624
  Receipt Date: 20150706
  Transmission Date: 20151125
  Serious: Yes (Other)
  Sender: FDA-Public Use
  Company Number: PHHY2015AR071429

PATIENT
  Sex: Female

DRUGS (1)
  1. DIOVAN [Suspect]
     Active Substance: VALSARTAN
     Indication: HYPERTENSION
     Dosage: 0.5 DF, QD (320 MG) (10 YEARS AGO)
     Route: 048

REACTIONS (6)
  - Fear [Unknown]
  - Benign neoplasm of thyroid gland [Unknown]
  - Nervousness [Unknown]
  - Wrong technique in product usage process [Unknown]
  - Upper limb fracture [Recovered/Resolved]
  - Blood pressure increased [Recovered/Resolved]

NARRATIVE: CASE EVENT DATE: 2006
